FAERS Safety Report 19188797 (Version 2)
Quarter: 2022Q4

REPORT INFORMATION
  Report Type: Spontaneous
  Country: US (occurrence: US)
  Receive Date: 20210428
  Receipt Date: 20221005
  Transmission Date: 20230113
  Serious: Yes (Death, Other)
  Sender: FDA-Public Use
  Company Number: US-SA-SAC20210427000962

PATIENT
  Age: 65 Year
  Sex: Male

DRUGS (1)
  1. ZANTAC [Suspect]
     Active Substance: RANITIDINE HYDROCHLORIDE
     Indication: Dyspepsia
     Dosage: 150 MG, QW
     Dates: start: 201401, end: 201909

REACTIONS (4)
  - Gastric cancer [Fatal]
  - Oesophageal carcinoma [Fatal]
  - Hepatic cancer [Fatal]
  - Brain neoplasm malignant [Fatal]

NARRATIVE: CASE EVENT DATE: 20170530
